FAERS Safety Report 4818094-8 (Version None)
Quarter: 2005Q4

REPORT INFORMATION
  Report Type: 
  Country: None (occurrence: None)
  Receive Date: 20051102
  Receipt Date: 20050922
  Transmission Date: 20060501
  Serious: Yes (Other)
  Sender: FDA-Public Use
  Company Number: JP-JPN-A20052260

PATIENT
  Age: 81 Year
  Sex: Male

DRUGS (12)
  1. PAXIL [Suspect]
     Indication: DEPRESSION
     Dosage: 20MG PER DAY
     Route: 048
     Dates: start: 20050725, end: 20050803
  2. NORVASC [Concomitant]
     Indication: HYPERTENSION
     Dosage: 5MG PER DAY
     Route: 048
  3. BLOPRESS [Concomitant]
     Indication: HYPERTENSION
     Dosage: 8MG PER DAY
     Route: 048
  4. PANALDINE [Concomitant]
     Indication: HYPERTENSION
     Dosage: 100MG PER DAY
     Route: 048
  5. BUFFERIN [Concomitant]
     Indication: HYPERTENSION
     Dosage: 81MG PER DAY
     Route: 048
  6. BUP-4 [Concomitant]
     Indication: NEUROGENIC BLADDER
     Route: 048
  7. FLIVAS [Concomitant]
     Indication: NEUROGENIC BLADDER
     Dosage: 50MG PER DAY
     Route: 048
  8. UBRETID [Concomitant]
     Indication: NEUROGENIC BLADDER
     Route: 048
  9. VERAPAMIL [Concomitant]
     Dosage: 120MG PER DAY
     Route: 048
  10. MAGLAX [Concomitant]
     Indication: CONSTIPATION
     Dosage: 990MG PER DAY
     Route: 048
  11. RIKKUNSHI-TO [Concomitant]
     Indication: ANOREXIA
     Dosage: 7.5G PER DAY
     Route: 048
  12. HALCION [Concomitant]
     Indication: INSOMNIA
     Dosage: .125MG PER DAY
     Route: 048

REACTIONS (2)
  - BLOOD SODIUM DECREASED [None]
  - INAPPROPRIATE ANTIDIURETIC HORMONE SECRETION [None]
